FAERS Safety Report 18350391 (Version 1)
Quarter: 2020Q4

REPORT INFORMATION
  Report Type: Spontaneous
  Country: US (occurrence: US)
  Receive Date: 20201006
  Receipt Date: 20201006
  Transmission Date: 20210114
  Serious: Yes (Death, Other)
  Sender: FDA-Public Use
  Company Number: US-PURDUE-USA-2020-0166408

PATIENT
  Sex: Male

DRUGS (2)
  1. HEROIN [Suspect]
     Active Substance: DIAMORPHINE
     Indication: PRODUCT USED FOR UNKNOWN INDICATION
     Dosage: UNK
     Route: 065
  2. OXYCONTIN [Suspect]
     Active Substance: OXYCODONE HYDROCHLORIDE
     Indication: BACK PAIN
     Dosage: UNK
     Route: 048

REACTIONS (9)
  - Death [Fatal]
  - Drug abuse [Unknown]
  - Confusional state [Unknown]
  - Drug dependence [Unknown]
  - Emotional distress [Unknown]
  - Disturbance in attention [Unknown]
  - Overdose [Unknown]
  - Anxiety [Unknown]
  - Depression [Unknown]
